FAERS Safety Report 8459002-0 (Version None)
Quarter: 2012Q2

REPORT INFORMATION
  Report Type: 
  Country: None (occurrence: None)
  Receive Date: 20120622
  Receipt Date: 20120612
  Transmission Date: 20120825
  Serious: Yes (Hospitalization)
  Sender: FDA-Public Use
  Company Number: DE-ROCHE-1077874

PATIENT
  Sex: Female
  Weight: 61 kg

DRUGS (12)
  1. HERCEPTIN [Suspect]
     Indication: GASTRIC CANCER
     Dosage: LAST DOSE PRIOR TO SAE: 24/MAY/2012
     Route: 042
     Dates: end: 20120524
  2. DOCETAXEL [Suspect]
     Indication: GASTRIC CANCER
     Dosage: LAST DOSE PRIOR TO SAE: 24/MAY/2012
     Route: 042
     Dates: end: 20120524
  3. NEBIVOLOL [Concomitant]
  4. SIMVASTATIN [Concomitant]
  5. OXALIPLATIN [Suspect]
     Indication: GASTRIC CANCER
     Dosage: LAST DOSE PRIOR TO SAE: 24/MAY/2012
     Route: 042
     Dates: end: 20120524
  6. FLUOROURACIL [Suspect]
     Indication: GASTRIC CANCER
     Dosage: LAST DOSE PRIOR TO SAE: 25/MAY/2012
     Route: 042
     Dates: end: 20120525
  7. LEVOTHYROXINE SODIUM [Concomitant]
  8. METOCLOPRAMIDE [Concomitant]
     Route: 048
  9. GRANISETRON [Concomitant]
  10. VITAMIN B-12 [Concomitant]
     Route: 058
  11. NOVALGIN [Concomitant]
     Route: 048
     Dates: start: 20120604, end: 20120605
  12. ENALAPRIL MALEATE [Concomitant]

REACTIONS (7)
  - HYPOKALAEMIA [None]
  - PYREXIA [None]
  - UROSEPSIS [None]
  - SYNCOPE [None]
  - LEUKOPENIA [None]
  - ATRIOVENTRICULAR BLOCK [None]
  - WEIGHT DECREASED [None]
